FAERS Safety Report 12109243 (Version 1)
Quarter: 2016Q1

REPORT INFORMATION
  Report Type: Spontaneous
  Country: US (occurrence: None)
  Receive Date: 20160222
  Receipt Date: 20160222
  Transmission Date: 20160526
  Serious: Yes (Other)
  Sender: FDA-Public Use
  Company Number: None

PATIENT
  Age: 8 Year
  Sex: Male
  Weight: 51.26 kg

DRUGS (2)
  1. ARIPIPRAZOLE. [Suspect]
     Active Substance: ARIPIPRAZOLE
     Indication: ANXIETY DISORDER
     Dosage: ONE TAB DAILY ORAL
     Route: 048
     Dates: start: 20151105
  2. ARIPIPRAZOLE. [Suspect]
     Active Substance: ARIPIPRAZOLE
     Indication: ATTENTION DEFICIT/HYPERACTIVITY DISORDER
     Dosage: ONE TAB DAILY ORAL
     Route: 048
     Dates: start: 20151105

REACTIONS (5)
  - Condition aggravated [None]
  - Anxiety [None]
  - Fear [None]
  - Disturbance in attention [None]
  - Obsessive-compulsive disorder [None]
